FAERS Safety Report 8382884 (Version 2)
Quarter: 2015Q2

REPORT INFORMATION
  Report Type: Report from Study
  Country: US (occurrence: US)
  Receive Date: 20120201
  Receipt Date: 20150618
  Transmission Date: 20150821
  Serious: Yes (Death)
  Sender: FDA-Public Use
  Company Number: US-ROCHE-1035241

PATIENT
  Sex: Female

DRUGS (12)
  1. GEMZAR [Concomitant]
     Active Substance: GEMCITABINE HYDROCHLORIDE
     Route: 042
  2. AVASTIN [Suspect]
     Active Substance: BEVACIZUMAB
     Route: 042
  3. TYLOX [Concomitant]
     Active Substance: ACETAMINOPHEN\OXYCODONE HYDROCHLORIDE
  4. AVASTIN [Suspect]
     Active Substance: BEVACIZUMAB
     Route: 042
  5. PHENERGAN [Concomitant]
     Active Substance: PROMETHAZINE HYDROCHLORIDE
  6. LORTAB (UNITED STATES) [Concomitant]
  7. LOVENOX [Concomitant]
     Active Substance: ENOXAPARIN SODIUM
  8. AVASTIN [Suspect]
     Active Substance: BEVACIZUMAB
     Indication: OVARIAN CANCER
     Route: 042
     Dates: start: 20060614
  9. KYTRIL [Concomitant]
     Active Substance: GRANISETRON HYDROCHLORIDE
     Route: 042
  10. ARANESP [Concomitant]
     Active Substance: DARBEPOETIN ALFA
     Route: 065
  11. COUMADIN [Concomitant]
     Active Substance: WARFARIN SODIUM
  12. VOMIZ [Concomitant]
     Route: 065

REACTIONS (10)
  - Hypoaesthesia [Unknown]
  - Off label use [Unknown]
  - Fatigue [Unknown]
  - Back pain [Unknown]
  - Death [Fatal]
  - Musculoskeletal pain [Unknown]
  - Thrombosis [Unknown]
  - Vomiting [Unknown]
  - Nausea [Unknown]
  - Pollakiuria [Unknown]
